FAERS Safety Report 14221742 (Version 1)
Quarter: 2017Q4

REPORT INFORMATION
  Report Type: Spontaneous
  Country: CN (occurrence: CN)
  Receive Date: 20171124
  Receipt Date: 20171124
  Transmission Date: 20180321
  Serious: Yes (Other)
  Sender: FDA-Public Use
  Company Number: CN-009507513-1708CHN007591

PATIENT
  Age: 4 Year
  Sex: Female
  Weight: 18.5 kg

DRUGS (4)
  1. NOXAFIL [Suspect]
     Active Substance: POSACONAZOLE
     Indication: BRONCHOPULMONARY ASPERGILLOSIS
     Dosage: 80 MG, THRICE
     Route: 048
     Dates: start: 20170804, end: 20170806
  2. NOXAFIL [Suspect]
     Active Substance: POSACONAZOLE
     Dosage: 80 MG, TWICE
     Route: 048
     Dates: start: 20170807, end: 20170807
  3. NOXAFIL [Suspect]
     Active Substance: POSACONAZOLE
     Dosage: 100 MG, ONCE
     Route: 048
     Dates: start: 20170807, end: 20170807
  4. NOXAFIL [Suspect]
     Active Substance: POSACONAZOLE
     Dosage: 100 MG, THRICE
     Route: 048
     Dates: start: 20170808, end: 20170822

REACTIONS (3)
  - Hypoxia [Recovered/Resolved]
  - Secondary hypertension [Recovered/Resolved]
  - Off label use [Unknown]

NARRATIVE: CASE EVENT DATE: 20170804
